FAERS Safety Report 8048637-5 (Version None)
Quarter: 2012Q1

REPORT INFORMATION
  Report Type: 
  Country: None (occurrence: None)
  Receive Date: 20120117
  Receipt Date: 20120110
  Transmission Date: 20120608
  Serious: Yes (Death, Hospitalization)
  Sender: FDA-Public Use
  Company Number: US-AMGEN-USASP2012001767

PATIENT
  Age: 82 Year
  Sex: Male

DRUGS (1)
  1. ENBREL [Suspect]
     Indication: PSORIASIS
     Dosage: UNK

REACTIONS (5)
  - RENAL FAILURE [None]
  - GASTROINTESTINAL INFECTION [None]
  - PROSTATOMEGALY [None]
  - PNEUMONIA [None]
  - DEATH [None]
